FAERS Safety Report 17286049 (Version 1)
Quarter: 2020Q1

REPORT INFORMATION
  Report Type: Spontaneous
  Country: CA (occurrence: CA)
  Receive Date: 20200118
  Receipt Date: 20200118
  Transmission Date: 20200409
  Serious: Yes (Other)
  Sender: FDA-Public Use
  Company Number: CA-AUROBINDO-AUR-APL-2019-091664

PATIENT
  Age: 55 Year
  Sex: Male

DRUGS (12)
  1. DIOVAN [Suspect]
     Active Substance: VALSARTAN
     Indication: PRODUCT USED FOR UNKNOWN INDICATION
     Dosage: UNK UNK, ONCE A DAY
     Route: 048
  2. PANTOPRAZOLE [Suspect]
     Active Substance: PANTOPRAZOLE
     Indication: PRODUCT USED FOR UNKNOWN INDICATION
     Dosage: UNK UNK, ONCE A DAY
     Route: 048
  3. COSENTYX [Suspect]
     Active Substance: SECUKINUMAB
     Indication: PSORIATIC ARTHROPATHY
     Dosage: 150 MILLIGRAM, 1 EVERY 1 MONTH
     Route: 058
  4. SIMPONI [Concomitant]
     Active Substance: GOLIMUMAB
     Indication: ANKYLOSING SPONDYLITIS
     Dosage: UNK UNK, EVERY WEEK
     Route: 058
  5. HUMIRA [Concomitant]
     Active Substance: ADALIMUMAB
     Indication: ANKYLOSING SPONDYLITIS
     Dosage: UNK UNK, EVERY WEEK, (Q.WK.)
     Route: 058
  6. STELARA [Concomitant]
     Active Substance: USTEKINUMAB
     Indication: ANKYLOSING SPONDYLITIS
     Dosage: UNK UNK, EVERY WEEK
     Route: 058
  7. REMICADE [Concomitant]
     Active Substance: INFLIXIMAB
     Indication: ANKYLOSING SPONDYLITIS
     Dosage: UNK UNK, EVERY WEEK
     Route: 058
  8. CELEBREX [Concomitant]
     Active Substance: CELECOXIB
     Indication: PRODUCT USED FOR UNKNOWN INDICATION
     Dosage: 1 DOSAGE FORM, ONCE A DAY
     Route: 048
  9. VOLTAREN [Suspect]
     Active Substance: DICLOFENAC SODIUM
     Indication: PRODUCT USED FOR UNKNOWN INDICATION
     Dosage: UNK
     Route: 048
  10. TYLENOL [Concomitant]
     Active Substance: ACETAMINOPHEN
     Indication: PRODUCT USED FOR UNKNOWN INDICATION
     Dosage: UNK
     Route: 048
  11. COSENTYX [Suspect]
     Active Substance: SECUKINUMAB
     Dosage: 150 MILLIGRAM, EVERY WEEK
     Route: 058
  12. ORENCIA [Concomitant]
     Active Substance: ABATACEPT
     Indication: ANKYLOSING SPONDYLITIS
     Dosage: UNK UNK, EVERY WEEK, (Q.WK.)
     Route: 058

REACTIONS (3)
  - Diarrhoea [Not Recovered/Not Resolved]
  - Crohn^s disease [Not Recovered/Not Resolved]
  - Lower respiratory tract infection [Not Recovered/Not Resolved]
